FAERS Safety Report 13996999 (Version 3)
Quarter: 2017Q4

REPORT INFORMATION
  Report Type: Spontaneous
  Country: US (occurrence: US)
  Receive Date: 20170921
  Receipt Date: 20171023
  Transmission Date: 20180321
  Serious: No
  Sender: FDA-Public Use
  Company Number: PHEH2017US030365

PATIENT
  Sex: Male

DRUGS (2)
  1. AFINITOR [Suspect]
     Active Substance: EVEROLIMUS
     Indication: PRODUCT USED FOR UNKNOWN INDICATION
     Dosage: UNK
     Route: 065
     Dates: start: 20170915
  2. LENVATINIB [Suspect]
     Active Substance: LENVATINIB
     Indication: RENAL NEOPLASM
     Dosage: 18 MG, QD
     Route: 048
     Dates: start: 20170829

REACTIONS (4)
  - Mean cell volume increased [Unknown]
  - Fatigue [Recovered/Resolved]
  - Red blood cell count decreased [Unknown]
  - Diarrhoea [Recovered/Resolved]
